FAERS Safety Report 8219006-X (Version None)
Quarter: 2012Q1

REPORT INFORMATION
  Report Type: 
  Country: None (occurrence: None)
  Receive Date: 20120319
  Receipt Date: 20120312
  Transmission Date: 20120608
  Serious: Yes (Death, Hospitalization)
  Sender: FDA-Public Use
  Company Number: US-MERCK-1203USA01494

PATIENT
  Age: 76 Year
  Sex: Female

DRUGS (2)
  1. EXENATIDE [Suspect]
     Indication: DIABETES MELLITUS
     Route: 065
  2. JANUVIA [Suspect]
     Indication: BLOOD GLUCOSE
     Route: 048

REACTIONS (1)
  - PANCREATITIS NECROTISING [None]
